FAERS Safety Report 25248464 (Version 1)
Quarter: 2025Q2

REPORT INFORMATION
  Report Type: Spontaneous
  Country: US (occurrence: US)
  Receive Date: 20250429
  Receipt Date: 20250429
  Transmission Date: 20250716
  Serious: No
  Sender: TARO
  Company Number: US-TARO PHARMACEUTICALS USA INC.-2024TAR02535

PATIENT

DRUGS (1)
  1. FLUOROURACIL [Suspect]
     Active Substance: FLUOROURACIL
     Indication: Actinic keratosis
     Dosage: UNK, OD, USED SPARINGLY, FACE, FOREHEAD, SCALP, AND SIDEBURNS
     Route: 061
     Dates: start: 202411

REACTIONS (2)
  - Sensitive skin [Recovering/Resolving]
  - Off label use [Unknown]
